FAERS Safety Report 15129572 (Version 2)
Quarter: 2019Q1

REPORT INFORMATION
  Report Type: Spontaneous
  Country: US (occurrence: US)
  Receive Date: 20180711
  Receipt Date: 20190128
  Transmission Date: 20190417
  Serious: Yes (Other)
  Sender: FDA-Public Use
  Company Number: US-SA-2018SA184523

PATIENT
  Age: 47 Year
  Sex: Female
  Weight: 56 kg

DRUGS (9)
  1. TAXOTERE [Suspect]
     Active Substance: DOCETAXEL
     Indication: BREAST CANCER FEMALE
     Dosage: UNK UNK, QCY
     Route: 042
     Dates: start: 20110908, end: 20110908
  2. ZOFRAN [Concomitant]
     Active Substance: ONDANSETRON HYDROCHLORIDE
     Route: 048
  3. COMPAZINE [PROCHLORPERAZINE EDISYLATE] [Concomitant]
     Active Substance: PROCHLORPERAZINE EDISYLATE
     Dosage: UNK
     Route: 048
     Dates: start: 20110825, end: 20110901
  4. PHENERGAN [Concomitant]
     Active Substance: PROMETHAZINE HYDROCHLORIDE
     Dosage: UNK
     Route: 048
     Dates: start: 20110917, end: 20110924
  5. TAXOTERE [Suspect]
     Active Substance: DOCETAXEL
     Dosage: UNK UNK, QCY
     Route: 042
     Dates: start: 20111222, end: 20111222
  6. CYMBALTA [Concomitant]
     Active Substance: DULOXETINE HYDROCHLORIDE
     Route: 048
  7. MYCOSTATIN [Concomitant]
     Active Substance: NYSTATIN
     Dosage: UNK
     Dates: start: 20110917, end: 20120119
  8. LISINOPRIL. [Concomitant]
     Active Substance: LISINOPRIL
     Route: 048
  9. FLAGYL [Concomitant]
     Active Substance: METRONIDAZOLE\METRONIDAZOLE HYDROCHLORIDE
     Dosage: UNK
     Route: 048
     Dates: start: 20110917, end: 20110927

REACTIONS (3)
  - Alopecia [Recovering/Resolving]
  - Emotional distress [Unknown]
  - Psychological trauma [Unknown]

NARRATIVE: CASE EVENT DATE: 2011
